FAERS Safety Report 7364835-8 (Version None)
Quarter: 2011Q1

REPORT INFORMATION
  Report Type: 
  Country: None (occurrence: None)
  Receive Date: 20110316
  Receipt Date: 20110316
  Transmission Date: 20110831
  Serious: Yes (Hospitalization)
  Sender: FDA-Public Use
  Company Number: None

PATIENT
  Age: 63 Year
  Sex: Male

DRUGS (2)
  1. LISINOPRIL [Suspect]
     Indication: HYPERTENSION
     Dates: start: 20060208, end: 20110302
  2. COLCHICINE [Suspect]
     Indication: GOUT
     Dosage: 0.6 MG BID PO
     Route: 048
     Dates: start: 20051206

REACTIONS (1)
  - RENAL FAILURE ACUTE [None]
